FAERS Safety Report 19869756 (Version 1)
Quarter: 2021Q3

REPORT INFORMATION
  Report Type: Report from Study
  Country: BR (occurrence: BR)
  Receive Date: 20210923
  Receipt Date: 20210923
  Transmission Date: 20211014
  Serious: Yes (Hospitalization)
  Sender: FDA-Public Use
  Company Number: NVSC2021BR151842

PATIENT
  Age: 38 Year
  Sex: Male

DRUGS (2)
  1. COSENTYX [Suspect]
     Active Substance: SECUKINUMAB
     Dosage: UNK (LAST APPLICATION)
     Route: 065
     Dates: start: 20210528
  2. COSENTYX [Suspect]
     Active Substance: SECUKINUMAB
     Indication: PSORIATIC ARTHROPATHY
     Dosage: 300 MG, QW
     Route: 065
     Dates: start: 20210430

REACTIONS (8)
  - Hyperkeratosis [Recovering/Resolving]
  - Malaise [Unknown]
  - Weight decreased [Unknown]
  - Inappropriate schedule of product administration [Not Recovered/Not Resolved]
  - Injection site pain [Unknown]
  - Back injury [Not Recovered/Not Resolved]
  - Pain in extremity [Not Recovered/Not Resolved]
  - Pruritus [Recovering/Resolving]

NARRATIVE: CASE EVENT DATE: 20210430
